FAERS Safety Report 4655086-6 (Version None)
Quarter: 2005Q2

REPORT INFORMATION
  Report Type: 
  Country: None (occurrence: None)
  Receive Date: 20050503
  Receipt Date: 20050425
  Transmission Date: 20051028
  Serious: Yes (Other)
  Sender: FDA-Public Use
  Company Number: 2004UW23847

PATIENT

DRUGS (2)
  1. SEROQUEL [Suspect]
  2. ZYPREXA [Suspect]

REACTIONS (1)
  - NEUTROPENIA [None]
